FAERS Safety Report 5931370-0 (Version None)
Quarter: 2008Q4

REPORT INFORMATION
  Report Type: 
  Country: None (occurrence: None)
  Receive Date: 20081027
  Receipt Date: 20081015
  Transmission Date: 20090506
  Serious: Yes (Disabling)
  Sender: FDA-Public Use
  Company Number: PT-ROCHE-520539

PATIENT
  Sex: Female

DRUGS (4)
  1. PEG-INTERFERON ALFA 2A (RO 25-8310) [Suspect]
     Route: 058
     Dates: start: 20070517, end: 20070828
  2. RIBAVIRIN [Interacting]
     Route: 065
     Dates: start: 20070517, end: 20070828
  3. TRIZIVIR [Interacting]
     Indication: HIV INFECTION
     Route: 048
     Dates: start: 20070201
  4. IBUPROFEN TABLETS [Concomitant]
     Indication: PAIN
     Dosage: DRUG REPORTED AS IBUPROPHEN.
     Route: 048
     Dates: start: 20070501, end: 20070801

REACTIONS (7)
  - ANAEMIA [None]
  - ASCITES [None]
  - DRUG INTERACTION [None]
  - GENERALISED OEDEMA [None]
  - LYMPHADENOPATHY [None]
  - THROMBOCYTOPENIA [None]
  - WEIGHT DECREASED [None]
